FAERS Safety Report 17230909 (Version 2)
Quarter: 2020Q1

REPORT INFORMATION
  Report Type: Spontaneous
  Country: US (occurrence: US)
  Receive Date: 20200103
  Receipt Date: 20200225
  Transmission Date: 20200409
  Serious: Yes (Other)
  Sender: FDA-Public Use
  Company Number: US-ASTRAZENECA-2020SE01321

PATIENT
  Age: 29077 Day
  Sex: Female
  Weight: 63.5 kg

DRUGS (31)
  1. ACIPHEX [Suspect]
     Active Substance: RABEPRAZOLE SODIUM
     Indication: GASTROOESOPHAGEAL REFLUX DISEASE
     Route: 065
     Dates: start: 200308, end: 200701
  2. TOPROL XL [Concomitant]
     Active Substance: METOPROLOL SUCCINATE
     Indication: BLOOD PRESSURE ABNORMAL
     Route: 065
     Dates: start: 200402, end: 200902
  3. NAPROXEN. [Concomitant]
     Active Substance: NAPROXEN
     Indication: ANALGESIC INTERVENTION SUPPORTIVE THERAPY
     Route: 065
     Dates: start: 200410, end: 201409
  4. CYCLOBENZAPRINE. [Concomitant]
     Active Substance: CYCLOBENZAPRINE
     Indication: MUSCLE RELAXANT THERAPY
     Route: 065
     Dates: start: 200410, end: 201310
  5. PANTANOL [Concomitant]
     Indication: EYE DISORDER
     Route: 065
     Dates: start: 200602
  6. VITAMIN [Concomitant]
     Active Substance: VITAMINS
     Indication: ROUTINE HEALTH MAINTENANCE
     Route: 065
     Dates: start: 2018
  7. SIMVASTATIN. [Concomitant]
     Active Substance: SIMVASTATIN
     Route: 048
     Dates: start: 20161107
  8. FOSAMAX [Concomitant]
     Active Substance: ALENDRONATE SODIUM
     Indication: URINARY RETENTION
     Route: 065
     Dates: start: 200703, end: 200710
  9. NEXIUM [Suspect]
     Active Substance: ESOMEPRAZOLE MAGNESIUM
     Indication: GASTROOESOPHAGEAL REFLUX DISEASE
     Route: 048
     Dates: start: 20131016
  10. VYTORIN [Concomitant]
     Active Substance: EZETIMIBE\SIMVASTATIN
     Indication: BLOOD CHOLESTEROL ABNORMAL
     Route: 065
     Dates: start: 200601
  11. ASPIRIN. [Concomitant]
     Active Substance: ASPIRIN
     Indication: PAIN
     Route: 065
     Dates: start: 2018
  12. FAMOTIDINE. [Concomitant]
     Active Substance: FAMOTIDINE
     Route: 065
     Dates: start: 201611, end: 201704
  13. LACTAID [Concomitant]
     Active Substance: LACTASE
     Route: 048
     Dates: start: 20140806
  14. LOVASTATIN. [Concomitant]
     Active Substance: LOVASTATIN
     Indication: BLOOD CHOLESTEROL ABNORMAL
     Route: 065
     Dates: start: 200902, end: 201510
  15. IBUPROFEN. [Concomitant]
     Active Substance: IBUPROFEN
     Indication: PAIN
     Route: 065
     Dates: start: 2018
  16. ALTACE [Concomitant]
     Active Substance: RAMIPRIL
     Indication: BLOOD PRESSURE ABNORMAL
     Route: 065
     Dates: start: 200404
  17. CALTRATE [Concomitant]
     Active Substance: CALCIUM CARBONATE
     Indication: ROUTINE HEALTH MAINTENANCE
     Route: 065
     Dates: start: 2018
  18. LISINOPRIL. [Concomitant]
     Active Substance: LISINOPRIL
     Route: 065
     Dates: start: 20140306
  19. NEXIUM [Suspect]
     Active Substance: ESOMEPRAZOLE MAGNESIUM
     Indication: GASTROOESOPHAGEAL REFLUX DISEASE
     Route: 048
     Dates: start: 201001, end: 201608
  20. CENTRUM SILVER [Concomitant]
     Active Substance: MINERALS\VITAMINS
     Route: 048
     Dates: start: 20161107
  21. FLUTICASONE PROPIONATE. [Concomitant]
     Active Substance: FLUTICASONE PROPIONATE
     Route: 048
     Dates: start: 20161107
  22. GLYCOLAX [Concomitant]
     Active Substance: POLYETHYLENE GLYCOL 3350
     Route: 048
     Dates: start: 20140806
  23. CRESTOR [Concomitant]
     Active Substance: ROSUVASTATIN CALCIUM
     Indication: BLOOD CHOLESTEROL ABNORMAL
     Route: 065
     Dates: start: 200703, end: 200710
  24. BONIVA [Concomitant]
     Active Substance: IBANDRONATE SODIUM
     Indication: BONE DISORDER
     Route: 065
     Dates: start: 200811, end: 201110
  25. MEDROL [Concomitant]
     Active Substance: METHYLPREDNISOLONE
     Route: 048
  26. CLARITIN [Concomitant]
     Active Substance: LORATADINE
     Route: 048
     Dates: start: 20161107
  27. FLU VACCINE [Concomitant]
     Active Substance: INFLUENZA VIRUS VACCINE
     Route: 065
     Dates: start: 20161108
  28. ALIGN [Concomitant]
     Active Substance: BIFIDOBACTERIUM LONGUM SUBSP. INFANTIS
     Route: 048
     Dates: start: 20140806
  29. NEXIUM [Suspect]
     Active Substance: ESOMEPRAZOLE MAGNESIUM
     Indication: GASTROOESOPHAGEAL REFLUX DISEASE
     Route: 048
     Dates: start: 2003, end: 2017
  30. EVISTA [Concomitant]
     Active Substance: RALOXIFENE HYDROCHLORIDE
     Indication: HORMONE THERAPY
     Route: 065
     Dates: start: 200304
  31. TYLENOL [Concomitant]
     Active Substance: ACETAMINOPHEN
     Route: 065
     Dates: start: 20140306

REACTIONS (1)
  - Chronic kidney disease [Not Recovered/Not Resolved]

NARRATIVE: CASE EVENT DATE: 20160201
